FAERS Safety Report 6563177-8 (Version None)
Quarter: 2010Q1

REPORT INFORMATION
  Report Type: 
  Country: None (occurrence: None)
  Receive Date: 20100130
  Receipt Date: 20091209
  Transmission Date: 20100710
  Serious: Yes (Hospitalization)
  Sender: FDA-Public Use
  Company Number: US-ABBOTT-09P-163-0613334-00

PATIENT
  Sex: Female
  Weight: 61.29 kg

DRUGS (13)
  1. HUMIRA [Suspect]
     Indication: RHEUMATOID ARTHRITIS
     Route: 058
     Dates: start: 20090901, end: 20091103
  2. HUMIRA [Suspect]
     Dates: start: 20091203
  3. METHOTREXATE [Concomitant]
     Indication: RHEUMATOID ARTHRITIS
     Dosage: 8/WEEK
     Route: 048
  4. MOBIC [Concomitant]
     Indication: RHEUMATOID ARTHRITIS
     Dosage: AS NEEDED
     Route: 048
  5. LEVOTHYROXINE SODIUM [Concomitant]
     Indication: HYPOTHYROIDISM
     Route: 048
  6. FLU VACCINE [Concomitant]
     Indication: ANTIVIRAL PROPHYLAXIS
     Route: 058
  7. EFFEXOR XR [Concomitant]
     Indication: DEPRESSION
     Route: 048
  8. DYNACIRC CR [Concomitant]
     Indication: RAYNAUD'S PHENOMENON
     Route: 048
  9. FOLIC ACID [Concomitant]
     Indication: DRUG USE FOR UNKNOWN INDICATION
     Route: 048
  10. ASPIRIN [Concomitant]
     Indication: DRUG USE FOR UNKNOWN INDICATION
     Route: 048
  11. LOVAZA [Concomitant]
     Indication: MEDICAL DIET
     Route: 048
  12. CALCIUM SUPPLEMENT [Concomitant]
     Indication: MINERAL SUPPLEMENTATION
     Route: 048
  13. VITAMIN D [Concomitant]
     Indication: VITAMIN SUPPLEMENTATION
     Route: 048

REACTIONS (1)
  - LOWER LIMB FRACTURE [None]
